FAERS Safety Report 26057844 (Version 1)
Quarter: 2025Q4

REPORT INFORMATION
  Report Type: Spontaneous
  Country: US (occurrence: US)
  Receive Date: 20251118
  Receipt Date: 20251118
  Transmission Date: 20260118
  Serious: Yes (Other)
  Sender: ELITE
  Company Number: US-ELITEPHARMA-2025ELLIT00264

PATIENT
  Age: 26 Year
  Sex: Male

DRUGS (6)
  1. METHOTREXATE [Suspect]
     Active Substance: METHOTREXATE
     Indication: Anaplastic large cell lymphoma T- and null-cell types
     Dosage: 8 CYCLES COMPLETED
     Route: 042
  2. METHOTREXATE [Suspect]
     Active Substance: METHOTREXATE
  3. LEVOFLOXACIN [Concomitant]
     Active Substance: LEVOFLOXACIN
     Indication: Meningitis
     Route: 065
  4. MEROPENEM [Concomitant]
     Active Substance: MEROPENEM
     Indication: Meningitis
     Route: 065
  5. DOXYCYCLINE [Concomitant]
     Active Substance: DOXYCYCLINE
     Indication: Meningitis
     Route: 065
  6. ACYCLOVIR [Concomitant]
     Active Substance: ACYCLOVIR
     Indication: Meningitis
     Route: 065

REACTIONS (4)
  - Hemiparesis [Recovered/Resolved]
  - Altered state of consciousness [Recovered/Resolved]
  - Diffusion-weighted brain MRI abnormal [Unknown]
  - Product use issue [Unknown]
